FAERS Safety Report 4531828-5 (Version None)
Quarter: 2004Q4

REPORT INFORMATION
  Report Type: 
  Country: None (occurrence: None)
  Receive Date: 20041216
  Receipt Date: 20041130
  Transmission Date: 20050328
  Serious: Yes (Death, Hospitalization)
  Sender: FDA-Public Use
  Company Number: USA041285042

PATIENT
  Age: 84 Year
  Sex: Female

DRUGS (1)
  1. HUMULIN 50/50 [Suspect]

REACTIONS (4)
  - HIP FRACTURE [None]
  - MEDICATION ERROR [None]
  - MULTI-ORGAN FAILURE [None]
  - PHARMACEUTICAL PRODUCT COMPLAINT [None]
